FAERS Safety Report 9556990 (Version 1)
Quarter: 2013Q3

REPORT INFORMATION
  Report Type: Spontaneous
  Country: GB (occurrence: GB)
  Receive Date: 20130926
  Receipt Date: 20130926
  Transmission Date: 20140515
  Serious: Yes (Other)
  Sender: FDA-Public Use
  Company Number: PHHY2013GB103688

PATIENT
  Age: 74 Year
  Sex: Male

DRUGS (4)
  1. METRONIDAZOLE [Suspect]
     Indication: INFECTION
     Dosage: 400 MG, TID
     Route: 048
     Dates: start: 20130905, end: 20130906
  2. CODEINE PHOSPHATE [Concomitant]
  3. FLUTICASONE PROPIONATE [Concomitant]
  4. LORATADINE [Concomitant]

REACTIONS (1)
  - Dyspnoea [Recovered/Resolved]
